FAERS Safety Report 6524478-2 (Version None)
Quarter: 2010Q1

REPORT INFORMATION
  Report Type: 
  Country: None (occurrence: None)
  Receive Date: 20100104
  Receipt Date: 20091221
  Transmission Date: 20100710
  Serious: Yes (Hospitalization, Other)
  Sender: FDA-Public Use
  Company Number: US-TEVA-201422USA

PATIENT
  Sex: Male
  Weight: 60.836 kg

DRUGS (10)
  1. FLUOROURACIL [Suspect]
     Indication: COLORECTAL CANCER METASTATIC
     Dosage: ONCE EVERY TWO WEEKS
     Route: 042
     Dates: start: 20071112, end: 20080319
  2. FOLINIC ACID [Suspect]
     Indication: COLORECTAL CANCER METASTATIC
     Dosage: ONCE EVERY TWO WEEKS
     Route: 042
     Dates: start: 20071112, end: 20080317
  3. BEVACIZUMAB [Suspect]
     Indication: COLORECTAL CANCER METASTATIC
     Dosage: ONCE EVERY TWO WEEKS
     Route: 042
     Dates: start: 20071112, end: 20080317
  4. OXALIPLATIN [Suspect]
     Indication: COLORECTAL CANCER METASTATIC
     Dosage: ONCE EVERY TWO WEEKS
     Route: 042
     Dates: start: 20071112, end: 20080317
  5. UNKNOWN [Suspect]
     Dosage: ONCE EVERY TWO WEEKS
     Route: 042
     Dates: start: 20071112, end: 20080317
  6. ONDANSETRON [Concomitant]
     Dates: start: 20080322, end: 20080323
  7. OMEPRAZOLE [Concomitant]
     Dates: start: 20080322
  8. ALUMINIUM HYDROXIDE GEL, DRIED [Concomitant]
     Dates: start: 20080317
  9. FUROSEMIDE [Concomitant]
     Dates: start: 20080317
  10. PERI-COLACE [Concomitant]
     Dates: start: 20080317

REACTIONS (5)
  - ANAEMIA [None]
  - DEEP VEIN THROMBOSIS [None]
  - GASTROINTESTINAL HAEMORRHAGE [None]
  - OESOPHAGITIS [None]
  - SHOCK HAEMORRHAGIC [None]
